FAERS Safety Report 10310972 (Version 4)
Quarter: 2016Q2

REPORT INFORMATION
  Report Type: Spontaneous
  Country: US (occurrence: US)
  Receive Date: 20140717
  Receipt Date: 20160426
  Transmission Date: 20160815
  Serious: No
  Sender: FDA-Public Use
  Company Number: US-009507513-1407USA006201

PATIENT
  Sex: Male
  Weight: 100.23 kg

DRUGS (2)
  1. PROPECIA [Suspect]
     Active Substance: FINASTERIDE
     Indication: ACNE
  2. PROPECIA [Suspect]
     Active Substance: FINASTERIDE
     Indication: ANDROGENETIC ALOPECIA
     Dosage: 1 MG, QD
     Route: 048
     Dates: start: 2000, end: 200705

REACTIONS (8)
  - Cognitive disorder [Not Recovered/Not Resolved]
  - Scab [Unknown]
  - Erectile dysfunction [Unknown]
  - Sexual dysfunction [Not Recovered/Not Resolved]
  - Infertility [Not Recovered/Not Resolved]
  - Loss of libido [Unknown]
  - Semen volume decreased [Unknown]
  - Off label use [Unknown]

NARRATIVE: CASE EVENT DATE: 2000
